FAERS Safety Report 15192329 (Version 1)
Quarter: 2018Q3

REPORT INFORMATION
  Report Type: Spontaneous
  Country: BR (occurrence: BR)
  Receive Date: 20180724
  Receipt Date: 20180724
  Transmission Date: 20181010
  Serious: Yes (Hospitalization)
  Sender: FDA-Public Use
  Company Number: BR-ELI_LILLY_AND_COMPANY-BR201807009796

PATIENT
  Age: 38 Year
  Sex: Female

DRUGS (5)
  1. INSULIN HUMAN [Suspect]
     Active Substance: INSULIN HUMAN
     Dosage: 40 U, UNKNOWN
     Route: 065
  2. JARDIANCE [Concomitant]
     Active Substance: EMPAGLIFLOZIN
     Indication: PRODUCT USED FOR UNKNOWN INDICATION
     Dosage: 25 MG, UNKNOWN
     Route: 065
  3. INSULIN HUMAN [Suspect]
     Active Substance: INSULIN HUMAN
     Indication: PRODUCT USED FOR UNKNOWN INDICATION
     Dosage: 50 U, UNKNOWN
     Route: 065
  4. GLIFAGE [Concomitant]
     Active Substance: METFORMIN HYDROCHLORIDE
     Indication: PRODUCT USED FOR UNKNOWN INDICATION
     Dosage: UNK, UNKNOWN
     Route: 065
  5. INSULIN HUMAN [Suspect]
     Active Substance: INSULIN HUMAN
     Dosage: 20 U, UNKNOWN
     Route: 065

REACTIONS (2)
  - Ketoacidosis [Unknown]
  - Blood glucose increased [Unknown]
